FAERS Safety Report 23305018 (Version 1)
Quarter: 2023Q4

REPORT INFORMATION
  Report Type: Spontaneous
  Country: US (occurrence: US)
  Receive Date: 20231218
  Receipt Date: 20231218
  Transmission Date: 20240109
  Serious: Yes (Hospitalization, Other)
  Sender: FDA-Public Use
  Company Number: US-MLMSERVICE-20231208-4107782-1

PATIENT
  Age: 15 Year
  Sex: Male

DRUGS (14)
  1. CLOZAPINE [Suspect]
     Active Substance: CLOZAPINE
     Indication: Schizophrenia
     Dosage: 200 MILLIGRAM, ONCE A DAY (200 MG IN THE MORNING, 100 MG IN THE AFTERNOON, 250 MG IN THE EVENING (PR
     Route: 065
  2. CLOZAPINE [Suspect]
     Active Substance: CLOZAPINE
     Dosage: 50 MILLIGRAM, TWO TIMES A DAY (DECREASED TO 50 MG TWICE DAILY, DAY 5)
     Route: 065
  3. CLOZAPINE [Suspect]
     Active Substance: CLOZAPINE
     Dosage: 50 MILLIGRAM, ONCE A DAY (DECREASED TO 100 MG IN THE MORNING, 50 MG IN EVENING, DAY 4)
     Route: 065
  4. CLOZAPINE [Suspect]
     Active Substance: CLOZAPINE
     Dosage: 100 MILLIGRAM, ONCE A DAY (DECREASED TO 100 MG IN THE MORNING, 200 MG IN EVENING, DAY 2)
     Route: 065
  5. CLOZAPINE [Suspect]
     Active Substance: CLOZAPINE
     Dosage: 200 MILLIGRAM, ONCE A DAY (DECREASED TO 100 MG IN THE MORNING, 200 MG IN EVENING, DAY 2)
     Route: 065
  6. CLOZAPINE [Suspect]
     Active Substance: CLOZAPINE
     Dosage: 100 MILLIGRAM, ONCE A DAY (DECREASED TO 100 MG IN THE MORNING, 50 MG IN EVENING, DAY 4)
     Route: 065
  7. CLOZAPINE [Suspect]
     Active Substance: CLOZAPINE
     Dosage: 200 MILLIGRAM, ONCE A DAY (200 MG IN THE MORNING, OTHER DOSES HELD, DAY 1)
     Route: 065
  8. CLOZAPINE [Suspect]
     Active Substance: CLOZAPINE
     Dosage: 250 MILLIGRAM, ONCE A DAY (200 MG IN THE MORNING, 100 MG IN THE AFTERNOON, 250 MG IN THE EVENING (PR
     Route: 065
  9. CLOZAPINE [Suspect]
     Active Substance: CLOZAPINE
     Dosage: 100 MILLIGRAM, ONCE A DAY (200 MG IN THE MORNING, 100 MG IN THE AFTERNOON, 250 MG IN THE EVENING (PR
     Route: 065
  10. FLUOXETINE [Interacting]
     Active Substance: FLUOXETINE HYDROCHLORIDE
     Indication: Schizophrenia
     Dosage: 40 MILLIGRAM, ONCE A DAY (40 MG IN THE MORNING, 20 MG IN THE EVENING)
     Route: 065
  11. FLUOXETINE [Interacting]
     Active Substance: FLUOXETINE HYDROCHLORIDE
     Dosage: 40 MILLIGRAM, ONCE A DAY (DECRESED TO 40 MG DAILY, DAY 5)
     Route: 065
  12. FLUOXETINE [Interacting]
     Active Substance: FLUOXETINE HYDROCHLORIDE
     Dosage: 20 MILLIGRAM, ONCE A DAY (40 MG IN THE MORNING, 20 MG IN THE EVENING)
     Route: 065
  13. ZIPRASIDONE HYDROCHLORIDE [Interacting]
     Active Substance: ZIPRASIDONE HYDROCHLORIDE
     Indication: Schizophrenia
     Dosage: 40 MILLIGRAM, TWO TIMES A DAY
     Route: 065
  14. ZIPRASIDONE HYDROCHLORIDE [Interacting]
     Active Substance: ZIPRASIDONE HYDROCHLORIDE
     Dosage: 20 MILLIGRAM, TWO TIMES A DAY (DECREASED DAY 1)
     Route: 065

REACTIONS (4)
  - Delirium [Recovered/Resolved]
  - Drug interaction [Recovered/Resolved]
  - Malignant catatonia [Recovered/Resolved]
  - Antipsychotic drug level increased [Recovered/Resolved]
